FAERS Safety Report 4754013-0 (Version None)
Quarter: 2005Q3

REPORT INFORMATION
  Report Type: 
  Country: None (occurrence: None)
  Receive Date: 20050826
  Receipt Date: 20050812
  Transmission Date: 20060218
  Serious: Yes (Hospitalization)
  Sender: FDA-Public Use
  Company Number: HQWYE938416AUG05

PATIENT
  Age: 54 Year
  Sex: Male
  Weight: 88 kg

DRUGS (17)
  1. RAPAMUNE [Suspect]
     Indication: PROPHYLAXIS AGAINST TRANSPLANT REJECTION
     Dosage: SEE IMAGE
     Route: 048
  2. ZETIA [Concomitant]
  3. FUROSEMIDE [Concomitant]
  4. CARDIZEM [Concomitant]
  5. ALTACE [Concomitant]
  6. LANTUS [Concomitant]
  7. LABETALOL HCL [Concomitant]
  8. CELLCEPT [Concomitant]
  9. PREDNISONE [Concomitant]
  10. COLACE (DOCUSATE SODIUM) [Concomitant]
  11. HUMALGO (INSULIN LISPRO) [Concomitant]
  12. SEPTRA [Concomitant]
  13. PEPCID [Concomitant]
  14. ASPIRIN [Concomitant]
  15. SYNTHROID [Concomitant]
  16. ZOCOR [Concomitant]
  17. TOPROL-XL [Concomitant]

REACTIONS (2)
  - BLOOD PRESSURE SYSTOLIC INCREASED [None]
  - KIDNEY TRANSPLANT REJECTION [None]
